FAERS Safety Report 4602426-X (Version None)
Quarter: 2005Q1

REPORT INFORMATION
  Report Type: 
  Country: None (occurrence: None)
  Receive Date: 20050307
  Receipt Date: 20050222
  Transmission Date: 20050727
  Serious: Yes (Hospitalization, Other)
  Sender: FDA-Public Use
  Company Number: HQWYE668418JAN05

PATIENT
  Age: 55 Year
  Sex: Female

DRUGS (4)
  1. MYLOTARG [Suspect]
     Indication: ACUTE MYELOID LEUKAEMIA
     Dosage: SEE IMAGE
     Route: 042
     Dates: start: 20041210, end: 20041210
  2. MYLOTARG [Suspect]
     Indication: ACUTE MYELOID LEUKAEMIA
     Dosage: SEE IMAGE
     Route: 042
     Dates: start: 20041228, end: 20041228
  3. CIPRO [Concomitant]
  4. ACYCLOVIR [Concomitant]

REACTIONS (2)
  - FEBRILE NEUTROPENIA [None]
  - PLATELET COUNT DECREASED [None]
